FAERS Safety Report 14168476 (Version 2)
Quarter: 2018Q2

REPORT INFORMATION
  Report Type: Spontaneous
  Country: US (occurrence: US)
  Receive Date: 20171107
  Receipt Date: 20180515
  Transmission Date: 20180711
  Serious: No
  Sender: FDA-Public Use
  Company Number: US-SA-2017SA147473

PATIENT
  Age: 52 Year
  Sex: Female

DRUGS (2)
  1. TOUJEO [Suspect]
     Active Substance: INSULIN GLARGINE
     Route: 051
     Dates: end: 20170808
  2. SOLOSTAR [Suspect]
     Active Substance: DEVICE
     Dates: end: 20170808

REACTIONS (2)
  - Chest pain [Unknown]
  - Palpitations [Unknown]
